FAERS Safety Report 8986509 (Version 1)
Quarter: 2012Q4

REPORT INFORMATION
  Report Type: 
  Country: IT (occurrence: IT)
  Receive Date: 20121227
  Receipt Date: 20121227
  Transmission Date: 20130627
  Serious: Yes (Other)
  Sender: FDA-Public Use
  Company Number: PHHY2012IT119622

PATIENT
  Sex: Male

DRUGS (1)
  1. FUROSEMIDE [Suspect]
     Dosage: 1 DF, UNK
     Route: 048
     Dates: start: 20121207, end: 20121207

REACTIONS (3)
  - Anxiety [Recovering/Resolving]
  - Medication error [Unknown]
  - Accidental exposure to product [Unknown]
